FAERS Safety Report 5816905-0 (Version None)
Quarter: 2008Q3

REPORT INFORMATION
  Report Type: 
  Country: None (occurrence: None)
  Receive Date: 20080722
  Receipt Date: 20080717
  Transmission Date: 20090109
  Serious: Yes (Other)
  Sender: FDA-Public Use
  Company Number: US-BRISTOL-MYERS SQUIBB COMPANY-14268247

PATIENT
  Age: 27 Year
  Sex: Female

DRUGS (4)
  1. DIDANOSINE [Suspect]
  2. LAMIVUDINE [Suspect]
  3. NELFINAVIR [Suspect]
  4. ZIDOVUDINE [Suspect]

REACTIONS (2)
  - PREGNANCY [None]
  - STILLBIRTH [None]
